FAERS Safety Report 9921916 (Version 1)
Quarter: 2014Q1

REPORT INFORMATION
  Report Type: Spontaneous
  Country: US (occurrence: None)
  Receive Date: 20140221
  Receipt Date: 20140221
  Transmission Date: 20141002
  Serious: Yes (Other)
  Sender: FDA-Public Use
  Company Number: None

PATIENT
  Age: 38 Year
  Sex: Male
  Weight: 75 kg

DRUGS (12)
  1. SUCCINYLCHOLINE [Suspect]
     Indication: ENDOTRACHEAL INTUBATION
     Route: 042
     Dates: start: 20140220, end: 20140220
  2. PENICILLIN [Concomitant]
  3. PIPERACILLIN-TAZOBACTAM [Concomitant]
  4. BACTRIM DS [Concomitant]
  5. VANCOMYCIN [Concomitant]
  6. DARUNAVIR [Concomitant]
  7. EMTRICITABINE [Concomitant]
  8. ENOXAPARIN [Concomitant]
  9. ETOMIDATE [Concomitant]
  10. FAMOTIDINE [Suspect]
  11. FLUCONAZOLE [Suspect]
  12. TENOFOVIR [Concomitant]

REACTIONS (1)
  - Drug ineffective [None]
